FAERS Safety Report 20148705 (Version 1)
Quarter: 2021Q4

REPORT INFORMATION
  Report Type: Report from Study
  Country: CO (occurrence: CO)
  Receive Date: 20211204
  Receipt Date: 20211204
  Transmission Date: 20220303
  Serious: Yes (Other)
  Sender: FDA-Public Use
  Company Number: CO-NOVARTISPH-NVSC2021CO274407

PATIENT
  Sex: Male
  Weight: 79 kg

DRUGS (1)
  1. LOSARTAN [Suspect]
     Active Substance: LOSARTAN
     Indication: Hypertension
     Dosage: 50 MG, Q12H (FROM 5 YEARS AGO)
     Route: 048

REACTIONS (2)
  - Gastroenteropancreatic neuroendocrine tumour disease [Unknown]
  - Off label use [Unknown]
